FAERS Safety Report 4353964-9 (Version None)
Quarter: 2004Q2

REPORT INFORMATION
  Report Type: 
  Country: None (occurrence: None)
  Receive Date: 20040503
  Receipt Date: 20040423
  Transmission Date: 20050107
  Serious: Yes (Other)
  Sender: FDA-Public Use
  Company Number: FR-JNJFOC-20040305123

PATIENT
  Age: 64 Year
  Sex: Female

DRUGS (6)
  1. REMICADE [Suspect]
     Indication: ANKYLOSING SPONDYLITIS
     Dosage: 200 MG, INTRAVENOUS
     Route: 042
     Dates: start: 20011101, end: 20040401
  2. PREDNISONE TAB [Concomitant]
  3. METHOTREXATE [Concomitant]
  4. FOLIC ACID [Concomitant]
  5. CACIT VIT D3 (LEKOVIT CA) [Concomitant]
  6. IMOVANE (ZOPICLONE) [Concomitant]

REACTIONS (1)
  - RECTAL CANCER [None]
